FAERS Safety Report 23125812 (Version 1)
Quarter: 2023Q4

REPORT INFORMATION
  Report Type: Report from Study
  Country: US (occurrence: US)
  Receive Date: 20231030
  Receipt Date: 20231030
  Transmission Date: 20240110
  Serious: Yes (Death, Hospitalization)
  Sender: FDA-Public Use
  Company Number: US-TEVA-2023-US-2917459

PATIENT
  Age: 83 Year
  Sex: Female

DRUGS (1)
  1. BOSENTAN [Suspect]
     Active Substance: BOSENTAN
     Indication: Pulmonary hypertension
     Dosage: 125 MILLIGRAM DAILY; 62.5 MG TABLETS 60/BO
     Route: 048
     Dates: start: 20230306

REACTIONS (9)
  - Death [Fatal]
  - Dyspnoea [Unknown]
  - Hypoxia [Unknown]
  - Hypotension [Unknown]
  - Acute kidney injury [Unknown]
  - Hyperkalaemia [Unknown]
  - Hypervolaemia [Unknown]
  - Upper gastrointestinal haemorrhage [Unknown]
  - Bradycardia [Unknown]

NARRATIVE: CASE EVENT DATE: 20230101
